FAERS Safety Report 16120639 (Version 1)
Quarter: 2019Q1

REPORT INFORMATION
  Report Type: Spontaneous
  Country: FR (occurrence: FR)
  Receive Date: 20190327
  Receipt Date: 20190327
  Transmission Date: 20190418
  Serious: Yes (Hospitalization)
  Sender: FDA-Public Use
  Company Number: FR-PROVELL PHARMACEUTICALS-2064709

PATIENT
  Age: 80 Year
  Sex: Female
  Weight: 80 kg

DRUGS (1)
  1. EUTHYROX [Suspect]
     Active Substance: LEVOTHYROXINE SODIUM
     Indication: HYPOTHYROIDISM
     Dates: start: 201705, end: 2017

REACTIONS (15)
  - Vertigo [Recovered/Resolved]
  - Pain in extremity [Not Recovered/Not Resolved]
  - Ear pain [Recovered/Resolved]
  - Insomnia [Recovered/Resolved]
  - Malaise [Recovered/Resolved]
  - Fatigue [Recovered/Resolved]
  - Nausea [Recovered/Resolved]
  - Somnolence [Not Recovered/Not Resolved]
  - Cerebrovascular disorder [None]
  - Mastoid disorder [None]
  - Muscle spasms [Recovered/Resolved]
  - Blood thyroid stimulating hormone increased [Recovered/Resolved]
  - Dyspnoea [Not Recovered/Not Resolved]
  - Tinnitus [Recovered/Resolved]
  - Headache [Not Recovered/Not Resolved]

NARRATIVE: CASE EVENT DATE: 201705
